FAERS Safety Report 7207142-6 (Version None)
Quarter: 2010Q4

REPORT INFORMATION
  Report Type: 
  Country: None (occurrence: None)
  Receive Date: 20101221
  Receipt Date: 20101207
  Transmission Date: 20110411
  Serious: Yes (Hospitalization)
  Sender: FDA-Public Use
  Company Number: 20100024USST

PATIENT
  Sex: Male

DRUGS (1)
  1. PROCARBAZINE HYDROCHLORIDE [Suspect]

REACTIONS (1)
  - PNEUMONIA [None]
